FAERS Safety Report 9820302 (Version 1)
Quarter: 2014Q1

REPORT INFORMATION
  Report Type: Spontaneous
  Country: US (occurrence: US)
  Receive Date: 20140116
  Receipt Date: 20140116
  Transmission Date: 20141002
  Serious: Yes (Other)
  Sender: FDA-Public Use
  Company Number: US-SA-2014SA005495

PATIENT
  Sex: 0

DRUGS (1)
  1. ALLEGRA [Suspect]
     Route: 048

REACTIONS (4)
  - Back pain [Unknown]
  - Feeling abnormal [Unknown]
  - Sneezing [Unknown]
  - Drug ineffective [Unknown]
